FAERS Safety Report 7536159-7 (Version None)
Quarter: 2011Q2

REPORT INFORMATION
  Report Type: 
  Country: None (occurrence: None)
  Receive Date: 20110608
  Receipt Date: 20110608
  Transmission Date: 20111010
  Serious: Yes (Other)
  Sender: FDA-Public Use
  Company Number: None

PATIENT
  Age: 54 Year
  Sex: Male
  Weight: 77.3 kg

DRUGS (2)
  1. CIPROFLOXACIN [Suspect]
     Indication: PROSTATITIS
     Dosage: 500 MG B.I.D. ORAL (047)
     Route: 048
     Dates: start: 20110509, end: 20110519
  2. CIPROFLOXACIN [Suspect]
     Indication: EPIDIDYMITIS
     Dosage: 500 MG B.I.D. ORAL (047)
     Route: 048
     Dates: start: 20110509, end: 20110519

REACTIONS (1)
  - SERUM SICKNESS-LIKE REACTION [None]
